FAERS Safety Report 16158690 (Version 1)
Quarter: 2019Q2

REPORT INFORMATION
  Report Type: Spontaneous
  Country: US (occurrence: US)
  Receive Date: 20190403
  Receipt Date: 20190403
  Transmission Date: 20190711
  Serious: No
  Sender: FDA-Public Use
  Company Number: None

PATIENT
  Age: 46 Year
  Sex: Male
  Weight: 104.4 kg

DRUGS (16)
  1. STRATTERA [Concomitant]
     Active Substance: ATOMOXETINE HYDROCHLORIDE
  2. VITAMIN D [Concomitant]
     Active Substance: VITAMIN D NOS
  3. CYMBALTA [Concomitant]
     Active Substance: DULOXETINE HYDROCHLORIDE
  4. JANUMET XR [Concomitant]
     Active Substance: METFORMIN HYDROCHLORIDE\SITAGLIPTIN PHOSPHATE
  5. SINGULAIR [Concomitant]
     Active Substance: MONTELUKAST SODIUM
  6. VITAMIN E [Concomitant]
     Active Substance: .ALPHA.-TOCOPHEROL
  7. PROAIR HFA [Concomitant]
     Active Substance: ALBUTEROL SULFATE
  8. VASCEPA [Concomitant]
     Active Substance: ICOSAPENT ETHYL
  9. DEPAKOTE [Concomitant]
     Active Substance: DIVALPROEX SODIUM
  10. XYZAL [Concomitant]
     Active Substance: LEVOCETIRIZINE DIHYDROCHLORIDE
  11. GLIMIPERIDE [Concomitant]
     Active Substance: GLIMEPIRIDE
  12. JARDIANCE [Concomitant]
     Active Substance: EMPAGLIFLOZIN
  13. VALACYCLOVIR [Concomitant]
     Active Substance: VALACYCLOVIR HYDROCHLORIDE
  14. LISINOPRIL. [Suspect]
     Active Substance: LISINOPRIL
     Indication: HYPERTENSION
     Dosage: ?          QUANTITY:1 TABLET(S);?
     Route: 048
     Dates: start: 20181226, end: 20181229
  15. ADVAIR DISCUS 50/500 [Concomitant]
  16. ANTARA [Concomitant]
     Active Substance: FENOFIBRATE

REACTIONS (6)
  - Anger [None]
  - Product substitution issue [None]
  - Irritability [None]
  - Product size issue [None]
  - Abnormal behaviour [None]
  - Product quality issue [None]

NARRATIVE: CASE EVENT DATE: 20181226
